FAERS Safety Report 9476838 (Version 1)
Quarter: 2013Q3

REPORT INFORMATION
  Report Type: Spontaneous
  Country: US (occurrence: US)
  Receive Date: 20130826
  Receipt Date: 20130826
  Transmission Date: 20140515
  Serious: No
  Sender: FDA-Public Use
  Company Number: US-TARO-2012P1066967

PATIENT
  Sex: Male

DRUGS (1)
  1. CLOBEX [Suspect]
     Indication: PSORIASIS
     Route: 061
     Dates: start: 201210

REACTIONS (2)
  - Confusional state [Not Recovered/Not Resolved]
  - Muscular weakness [Not Recovered/Not Resolved]
